FAERS Safety Report 6659849-7 (Version None)
Quarter: 2010Q1

REPORT INFORMATION
  Report Type: 
  Country: None (occurrence: None)
  Receive Date: 20100330
  Receipt Date: 20100330
  Transmission Date: 20100710
  Serious: Yes (Death)
  Sender: FDA-Public Use
  Company Number: None

PATIENT
  Age: 61 Year
  Sex: Male

DRUGS (10)
  1. REVLIMID [Suspect]
     Indication: MULTIPLE MYELOMA
     Dosage: 10MG DAILY ORALLY
     Route: 048
     Dates: start: 20090624, end: 20090929
  2. PROCRIT [Concomitant]
  3. TEMAZEPAM [Concomitant]
  4. MS CONTIN [Concomitant]
  5. VUCODIN [Concomitant]
  6. ACYCLOVIR [Concomitant]
  7. TERAZOSIN HCL [Concomitant]
  8. PRILOSEC [Concomitant]
  9. ATENOLOL [Concomitant]
  10. PROZAC [Concomitant]

REACTIONS (1)
  - DEATH [None]
